FAERS Safety Report 22651823 (Version 1)
Quarter: 2023Q2

REPORT INFORMATION
  Report Type: Report from Study
  Country: US (occurrence: US)
  Receive Date: 20230628
  Receipt Date: 20230628
  Transmission Date: 20230722
  Serious: Yes (Hospitalization)
  Sender: FDA-Public Use
  Company Number: US-ABBVIE-5304312

PATIENT
  Sex: Female

DRUGS (5)
  1. RINVOQ [Suspect]
     Active Substance: UPADACITINIB
     Indication: Dermatitis atopic
     Dosage: DISCONTINUED IN APR 2023
     Route: 048
     Dates: start: 20221225
  2. RINVOQ [Suspect]
     Active Substance: UPADACITINIB
     Indication: Dermatitis atopic
     Route: 048
     Dates: start: 20230424, end: 20230430
  3. RINVOQ [Suspect]
     Active Substance: UPADACITINIB
     Indication: Dermatitis atopic
     Dosage: STARTED IN 2023
     Route: 048
     Dates: end: 20230617
  4. ITRACONAZOLE [Concomitant]
     Active Substance: ITRACONAZOLE
     Indication: Histoplasmosis
     Dates: start: 20230509
  5. VALGANCICLOVIR [Concomitant]
     Active Substance: VALGANCICLOVIR
     Indication: Cytomegalovirus infection
     Dates: start: 20230509

REACTIONS (4)
  - Cytomegalovirus infection [Recovered/Resolved]
  - Histoplasmosis [Recovered/Resolved]
  - Rhinovirus infection [Unknown]
  - Pain [Unknown]

NARRATIVE: CASE EVENT DATE: 20230101
